FAERS Safety Report 10223926 (Version 1)
Quarter: 2014Q2

REPORT INFORMATION
  Report Type: Spontaneous
  Country: US (occurrence: US)
  Receive Date: 20140609
  Receipt Date: 20140609
  Transmission Date: 20141212
  Serious: Yes (Other)
  Sender: FDA-Public Use
  Company Number: US-JNJFOC-20140517613

PATIENT
  Sex: Female

DRUGS (1)
  1. STELARA [Suspect]
     Indication: PITYRIASIS RUBRA PILARIS
     Route: 058

REACTIONS (1)
  - Lymphoma [Unknown]
